FAERS Safety Report 9613694 (Version 1)
Quarter: 2013Q4

REPORT INFORMATION
  Report Type: Spontaneous
  Country: US (occurrence: US)
  Receive Date: 20131010
  Receipt Date: 20131010
  Transmission Date: 20140711
  Serious: No
  Sender: FDA-Public Use
  Company Number: US-009507513-1309USA010435

PATIENT
  Sex: Female

DRUGS (2)
  1. NUVARING [Suspect]
     Dosage: UNK
     Route: 067
     Dates: start: 20130726
  2. NUVARING [Suspect]
     Dosage: UNK
     Route: 067
     Dates: start: 20130823

REACTIONS (3)
  - Overdose [Unknown]
  - Incorrect drug administration duration [Unknown]
  - No adverse event [Unknown]
